FAERS Safety Report 10206093 (Version 3)
Quarter: 2014Q2

REPORT INFORMATION
  Report Type: Spontaneous
  Country: US (occurrence: US)
  Receive Date: 20140530
  Receipt Date: 20140630
  Transmission Date: 20141212
  Serious: Yes (Hospitalization)
  Sender: FDA-Public Use
  Company Number: US-PFIZER INC-2014146466

PATIENT
  Age: 58 Year
  Sex: Male

DRUGS (4)
  1. SUTENT [Suspect]
     Indication: RENAL CANCER
     Dosage: UNK, (STRENGTH OF DOSAGE FORM: 50 MG)
     Dates: start: 20140512
  2. COMBIGAN [Concomitant]
     Dosage: UNK
  3. AZOPT [Concomitant]
     Dosage: UNK
  4. ALLOPURINOL [Concomitant]
     Dosage: UNK

REACTIONS (4)
  - Colitis [Unknown]
  - Dry mouth [Unknown]
  - Oedema [Unknown]
  - Diarrhoea [Unknown]
